FAERS Safety Report 5356854-8 (Version None)
Quarter: 2007Q2

REPORT INFORMATION
  Report Type: 
  Country: None (occurrence: None)
  Receive Date: 20070614
  Receipt Date: 20061122
  Transmission Date: 20071010
  Serious: No
  Sender: FDA-Public Use
  Company Number: US-ASTRAZENECA-2006UW25996

PATIENT
  Age: 89 Year
  Sex: Female
  Weight: 48.5 kg

DRUGS (3)
  1. ATACAND [Suspect]
     Route: 048
     Dates: start: 20061120
  2. HYDROCHLOROTHIAZIDE [Concomitant]
  3. DYNACIRC [Concomitant]

REACTIONS (3)
  - PHARYNGOLARYNGEAL PAIN [None]
  - RHINORRHOEA [None]
  - SINUS CONGESTION [None]
